FAERS Safety Report 8507433-2 (Version None)
Quarter: 2012Q3

REPORT INFORMATION
  Report Type: 
  Country: None (occurrence: None)
  Receive Date: 20120712
  Receipt Date: 20120319
  Transmission Date: 20120928
  Serious: Yes (Other)
  Sender: FDA-Public Use
  Company Number: PHHY2012CA025094

PATIENT
  Sex: Female

DRUGS (2)
  1. EXELON [Suspect]
     Indication: DEMENTIA ALZHEIMER'S TYPE
     Dosage: 4.6 MG / 24 HOURS
     Route: 062
  2. EXELON [Suspect]
     Dosage: 9.5 MG / 24 HOURS
     Route: 062
     Dates: start: 20120210

REACTIONS (7)
  - UPPER LIMB FRACTURE [None]
  - APPLICATION SITE BURN [None]
  - APPLICATION SITE PRURITUS [None]
  - WRIST FRACTURE [None]
  - FALL [None]
  - MEMORY IMPAIRMENT [None]
  - APPLICATION SITE ERYTHEMA [None]
